FAERS Safety Report 22330241 (Version 1)
Quarter: 2023Q2

REPORT INFORMATION
  Report Type: Spontaneous
  Country: US (occurrence: None)
  Receive Date: 20230517
  Receipt Date: 20230517
  Transmission Date: 20230721
  Serious: No
  Sender: FDA-Public Use
  Company Number: 2023A109659

PATIENT
  Sex: Female

DRUGS (1)
  1. SYMBICORT [Suspect]
     Active Substance: BUDESONIDE\FORMOTEROL FUMARATE DIHYDRATE
     Route: 055

REACTIONS (6)
  - Asthma [Unknown]
  - Incorrect dose administered by device [Unknown]
  - Intentional product misuse [Unknown]
  - Off label use [Unknown]
  - Device malfunction [Unknown]
  - Device use issue [Unknown]
